FAERS Safety Report 19232406 (Version 2)
Quarter: 2021Q2

REPORT INFORMATION
  Report Type: Spontaneous
  Country: IE (occurrence: IE)
  Receive Date: 20210507
  Receipt Date: 20210610
  Transmission Date: 20210717
  Serious: Yes (Other)
  Sender: FDA-Public Use
  Company Number: IE-TEVA-2021-IE-1900751

PATIENT
  Age: 82 Year
  Sex: Male

DRUGS (5)
  1. BISOPROLOL (GENERIC) [Suspect]
     Active Substance: BISOPROLOL
  2. COMIRNATY [Suspect]
     Active Substance: TOZINAMERAN
     Indication: COVID-19 IMMUNISATION
     Dosage: FIRST DOSE ADMINISTERED AT LUNCHTIME.
     Dates: start: 20210312
  3. COMIRNATY [Suspect]
     Active Substance: TOZINAMERAN
     Dosage: SECOND DOSE
     Dates: start: 20210409
  4. EPLERENONE (G) [Suspect]
     Active Substance: EPLERENONE
     Dosage: 25 MG
  5. BURINEX [Concomitant]
     Active Substance: BUMETANIDE

REACTIONS (5)
  - Constipation [Recovered/Resolved]
  - Lower respiratory tract infection [Recovered/Resolved]
  - Abdominal discomfort [Recovered/Resolved]
  - Dyspepsia [Recovered/Resolved]
  - Decreased appetite [Recovered/Resolved]

NARRATIVE: CASE EVENT DATE: 20210313
